FAERS Safety Report 20044282 (Version 2)
Quarter: 2021Q4

REPORT INFORMATION
  Report Type: Other
  Country: IT (occurrence: None)
  Receive Date: 20211108
  Receipt Date: 20211119
  Transmission Date: 20220303
  Serious: Yes (Death, Other)
  Sender: FDA-Public Use
  Company Number: IT-ROCHE-2950767

PATIENT

DRUGS (1)
  1. RITUXIMAB [Suspect]
     Active Substance: RITUXIMAB
     Indication: Mantle cell lymphoma
     Route: 065

REACTIONS (6)
  - Pneumonia [Fatal]
  - COVID-19 [Fatal]
  - Septic shock [Fatal]
  - Klebsiella infection [Fatal]
  - COVID-19 pneumonia [Unknown]
  - Upper respiratory tract infection [Unknown]
